FAERS Safety Report 14181007 (Version 1)
Quarter: 2017Q4

REPORT INFORMATION
  Report Type: Spontaneous
  Country: US (occurrence: None)
  Receive Date: 20171110
  Receipt Date: 20171110
  Transmission Date: 20180321
  Serious: No
  Sender: FDA-Public Use
  Company Number: None

PATIENT
  Age: 82 Year
  Sex: Female

DRUGS (1)
  1. SUPARTZ 25MG/2.5ML BIOVENTUS [Suspect]
     Active Substance: HYALURONATE SODIUM
     Indication: OSTEOARTHRITIS
     Route: 014
     Dates: start: 20170926

REACTIONS (3)
  - Headache [None]
  - Dizziness [None]
  - Nausea [None]

NARRATIVE: CASE EVENT DATE: 20171105
